FAERS Safety Report 8587902 (Version 2)
Quarter: 2013Q2

REPORT INFORMATION
  Report Type: Spontaneous
  Country: US (occurrence: US)
  Receive Date: 20120530
  Receipt Date: 20130605
  Transmission Date: 20140414
  Serious: No
  Sender: FDA-Public Use
  Company Number: US-JNJCH-2008011089

PATIENT
  Sex: Female

DRUGS (7)
  1. IBUPROFEN [Suspect]
     Indication: PAIN
     Dosage: 200 MG, UNK
     Route: 065
  2. CHANTIX [Interacting]
     Indication: SMOKING CESSATION THERAPY
     Dosage: UNK
     Dates: start: 200711
  3. FLEXERIL [Interacting]
     Indication: PAIN
     Dosage: 1 DOSE
     Route: 065
  4. EXTRA STRENGTH TYLENOL PM [Interacting]
     Indication: PAIN
     Dosage: 2 DOSES
  5. PROPACET [Interacting]
     Indication: PAIN
  6. OXYCOCET [Interacting]
     Indication: PAIN
     Dosage: UNK
  7. VICODIN [Interacting]
     Indication: PAIN
     Dosage: UNK

REACTIONS (3)
  - Drug ineffective [Recovering/Resolving]
  - Drug interaction [Unknown]
  - Drug administration error [Unknown]
